FAERS Safety Report 17699174 (Version 1)
Quarter: 2020Q2

REPORT INFORMATION
  Report Type: Spontaneous
  Country: US (occurrence: US)
  Receive Date: 20200422
  Receipt Date: 20200422
  Transmission Date: 20200714
  Serious: Yes (Hospitalization)
  Sender: FDA-Public Use
  Company Number: None

PATIENT
  Age: 80 Year
  Sex: Male
  Weight: 85 kg

DRUGS (1)
  1. RIVAROXABAN (RIVAROXABAN 20MG TAB ) [Suspect]
     Active Substance: RIVAROXABAN
     Indication: ATRIAL FIBRILLATION
     Route: 048
     Dates: end: 20200113

REACTIONS (2)
  - Large intestine polyp [None]
  - Gastric haemorrhage [None]

NARRATIVE: CASE EVENT DATE: 20200106
